FAERS Safety Report 8821542 (Version 1)
Quarter: 2012Q4

REPORT INFORMATION
  Report Type: 
  Country: US (occurrence: US)
  Receive Date: 20121002
  Receipt Date: 20121002
  Transmission Date: 20130627
  Serious: Yes (Hospitalization, Disabling, Other)
  Sender: FDA-Public Use
  Company Number: US-009507513-1107USA03588

PATIENT

DRUGS (7)
  1. FOSAMAX [Suspect]
     Indication: OSTEOPOROSIS
     Dosage: 70 mg, UNK
     Route: 048
     Dates: start: 2001, end: 200602
  2. FOSAMAX [Suspect]
     Indication: OSTEOPENIA
  3. BONIVA [Suspect]
     Indication: OSTEOPOROSIS
     Dosage: 150 mg, QM
     Route: 048
     Dates: start: 200602, end: 200912
  4. BONIVA [Suspect]
     Indication: OSTEOPENIA
  5. ACTONEL [Suspect]
     Indication: OSTEOPOROSIS
     Dosage: 35 mg, UNK
     Dates: start: 200207, end: 200307
  6. ACTONEL [Suspect]
     Indication: OSTEOPENIA
  7. EVISTA [Concomitant]
     Indication: OSTEOPOROSIS

REACTIONS (55)
  - Foot fracture [Unknown]
  - Road traffic accident [Unknown]
  - Osteonecrosis of jaw [Recovered/Resolved]
  - Atrophic vulvovaginitis [Unknown]
  - Hand fracture [Unknown]
  - Accident [Unknown]
  - Adverse event [Unknown]
  - Adverse event [Unknown]
  - Insomnia [Not Recovered/Not Resolved]
  - Acne [Unknown]
  - Hot flush [Unknown]
  - Adverse event [Unknown]
  - Hypertension [Unknown]
  - Nephrolithiasis [Unknown]
  - Oral disorder [Unknown]
  - Exostosis of jaw [Unknown]
  - Oral disorder [Unknown]
  - Thermal burn [Unknown]
  - Impaired healing [Unknown]
  - C-telopeptide [Unknown]
  - Sensitivity of teeth [Unknown]
  - Bruxism [Unknown]
  - Periodontal disease [Unknown]
  - Tooth disorder [Unknown]
  - Nocturia [Unknown]
  - Fatigue [Unknown]
  - Onychophagia [Unknown]
  - Measles [Unknown]
  - Mumps [Unknown]
  - Varicella [Unknown]
  - Cardiac murmur [Unknown]
  - Fracture malunion [Unknown]
  - Bunion [Unknown]
  - Foot deformity [Unknown]
  - Adverse event [Unknown]
  - Muscle hypertrophy [Unknown]
  - Jaw disorder [Unknown]
  - Ear pain [Unknown]
  - Libido decreased [Unknown]
  - Influenza [Unknown]
  - Diverticulitis [Unknown]
  - Depression [Unknown]
  - Blood potassium increased [Unknown]
  - Blood cholesterol increased [Unknown]
  - Blood cholesterol increased [Unknown]
  - Oral disorder [Unknown]
  - Oropharyngeal pain [Unknown]
  - Sinus congestion [Unknown]
  - Weight increased [Unknown]
  - Pelvic pain [Unknown]
  - Mitral valve incompetence [Unknown]
  - Musculoskeletal chest pain [Unknown]
  - Abdominal pain [Unknown]
  - Mouth ulceration [Unknown]
  - Headache [Unknown]
